FAERS Safety Report 6228678-0 (Version None)
Quarter: 2009Q2

REPORT INFORMATION
  Report Type: 
  Country: None (occurrence: None)
  Receive Date: 20090615
  Receipt Date: 20090604
  Transmission Date: 20091009
  Serious: Yes (Death, Life-Threatening, Hospitalization, Disabling, Other)
  Sender: FDA-Public Use
  Company Number: US-KINGPHARMUSA00001-K200900691

PATIENT
  Sex: Male

DRUGS (5)
  1. SEPTRA [Suspect]
     Indication: PHARYNGITIS STREPTOCOCCAL
     Dosage: UNK
     Dates: start: 20071001
  2. LAMICTAL [Suspect]
     Indication: OBSESSIVE-COMPULSIVE DISORDER
     Route: 039
  3. LAMICTAL [Suspect]
     Indication: DEPRESSION
  4. LAMICTAL [Suspect]
     Indication: ANXIETY
  5. AMOXIL [Suspect]
     Indication: PHARYNGITIS STREPTOCOCCAL
     Dosage: UNK
     Dates: start: 20071028, end: 20071001

REACTIONS (3)
  - DEATH [None]
  - MALAISE [None]
  - RASH GENERALISED [None]
